FAERS Safety Report 7900437-X (Version None)
Quarter: 2011Q4

REPORT INFORMATION
  Report Type: 
  Country: None (occurrence: None)
  Receive Date: 20111108
  Receipt Date: 20111103
  Transmission Date: 20120403
  Serious: Yes (Death)
  Sender: FDA-Public Use
  Company Number: BE-AMGEN-BELSP2011057505

PATIENT

DRUGS (1)
  1. NEUPOGEN [Suspect]
     Indication: APLASTIC ANAEMIA

REACTIONS (1)
  - GRAFT VERSUS HOST DISEASE [None]
